FAERS Safety Report 9438473 (Version 1)
Quarter: 2013Q3

REPORT INFORMATION
  Report Type: Spontaneous
  Country: US (occurrence: None)
  Receive Date: 20130802
  Receipt Date: 20130802
  Transmission Date: 20140515
  Serious: Yes (Other)
  Sender: FDA-Public Use
  Company Number: None

PATIENT
  Sex: 0

DRUGS (4)
  1. AMITRIPTYLINE [Suspect]
     Indication: HYPOAESTHESIA
     Dosage: 1-25 MG NOW 1-50 MG ONCE BEDTIME BY MOUTH
     Route: 048
  2. ANDRO GEL [Concomitant]
  3. CENTRUM SILVER FOR MEN [Concomitant]
  4. MAGNA RX [Concomitant]

REACTIONS (1)
  - Erectile dysfunction [None]
